FAERS Safety Report 14430376 (Version 1)
Quarter: 2018Q1

REPORT INFORMATION
  Report Type: Spontaneous
  Country: US (occurrence: US)
  Receive Date: 20180124
  Receipt Date: 20180124
  Transmission Date: 20180509
  Serious: Yes (Other)
  Sender: FDA-Public Use
  Company Number: US-ROCHE-2020986

PATIENT
  Age: 21 Year
  Sex: Female

DRUGS (27)
  1. CYCLOPHOSPHAMIDE. [Concomitant]
     Active Substance: CYCLOPHOSPHAMIDE
  2. CAPTOPRIL. [Concomitant]
     Active Substance: CAPTOPRIL
  3. HYDROCORTISONE SODIUM SUCCINATE [Concomitant]
     Active Substance: HYDROCORTISONE SODIUM SUCCINATE
  4. OXYMETAZOLINE [Concomitant]
     Active Substance: OXYMETAZOLINE
  5. FLUDARABINE [Concomitant]
     Active Substance: FLUDARABINE PHOSPHATE
  6. AMOXICILLIN/CLAVULANIC ACID [Concomitant]
     Active Substance: AMOXICILLIN\CLAVULANIC ACID
  7. ACTEMRA [Suspect]
     Active Substance: TOCILIZUMAB
     Indication: CYTOKINE RELEASE SYNDROME
     Dosage: THE FRACTIONATION DOSE FREQUENCY IS UNCERTAIN. ?DOSE INTERVAL UNCERTAINTY
     Route: 041
     Dates: start: 20160424, end: 20160424
  8. ACTEMRA [Suspect]
     Active Substance: TOCILIZUMAB
     Route: 041
     Dates: start: 20160503, end: 20160503
  9. TISAGENLECLEUCEL. [Suspect]
     Active Substance: TISAGENLECLEUCEL
     Indication: B-CELL TYPE ACUTE LEUKAEMIA
     Dosage: DOSAGE IS UNCERTAIN.
     Route: 041
  10. SALBUTAMOL [Concomitant]
     Active Substance: ALBUTEROL
  11. MEROPENEM. [Concomitant]
     Active Substance: MEROPENEM
  12. METHYLPREDNISOLONE. [Concomitant]
     Active Substance: METHYLPREDNISOLONE
  13. AMLODIPINE [Concomitant]
     Active Substance: AMLODIPINE BESYLATE
  14. FLUTICASONE. [Concomitant]
     Active Substance: FLUTICASONE
  15. ONDANSETRON [Concomitant]
     Active Substance: ONDANSETRON
  16. NOREPINEPHRINE. [Concomitant]
     Active Substance: NOREPINEPHRINE
  17. FUROSEMIDE. [Concomitant]
     Active Substance: FUROSEMIDE
  18. VANCOMYCIN [Concomitant]
     Active Substance: VANCOMYCIN
  19. CHLOROTHIAZIDE. [Concomitant]
     Active Substance: CHLOROTHIAZIDE
  20. PSEUDOEPHEDRINE HYDROCHLORIDE. [Concomitant]
     Active Substance: PSEUDOEPHEDRINE HYDROCHLORIDE
  21. PARACETAMOL [Concomitant]
     Active Substance: ACETAMINOPHEN
  22. MICAFUNGIN SODIUM [Concomitant]
     Active Substance: MICAFUNGIN SODIUM
  23. PHYTOMENADIONE [Concomitant]
     Active Substance: PHYTONADIONE
     Route: 065
  24. HEPARIN [Concomitant]
     Active Substance: HEPARIN SODIUM
  25. AZITHROMYCIN ANHYDROUS. [Concomitant]
     Active Substance: AZITHROMYCIN ANHYDROUS
  26. FENTANYL CITRATE. [Concomitant]
     Active Substance: FENTANYL CITRATE
  27. HYDRALAZINE [Concomitant]
     Active Substance: HYDRALAZINE HYDROCHLORIDE

REACTIONS (8)
  - Aspartate aminotransferase increased [Unknown]
  - Respiratory failure [Recovered/Resolved]
  - Acute kidney injury [Recovered/Resolved]
  - Delirium [Recovered/Resolved]
  - White blood cell count decreased [Unknown]
  - Clostridium difficile infection [Recovered/Resolved]
  - Alanine aminotransferase increased [Unknown]
  - Cardiac failure [Recovered/Resolved]

NARRATIVE: CASE EVENT DATE: 20160424
